FAERS Safety Report 21040342 (Version 3)
Quarter: 2022Q3

REPORT INFORMATION
  Report Type: Spontaneous
  Country: US (occurrence: US)
  Receive Date: 20220704
  Receipt Date: 20220819
  Transmission Date: 20221026
  Serious: No
  Sender: FDA-Public Use
  Company Number: US-JNJFOC-20220700454

PATIENT
  Sex: Female

DRUGS (1)
  1. PREZCOBIX [Suspect]
     Active Substance: COBICISTAT\DARUNAVIR ETHANOLATE
     Indication: Product used for unknown indication
     Dosage: 800/150 MG
     Route: 048

REACTIONS (2)
  - Retching [Unknown]
  - Product size issue [Unknown]
